FAERS Safety Report 9350087 (Version 1)
Quarter: 2013Q2

REPORT INFORMATION
  Report Type: Spontaneous
  Country: US (occurrence: US)
  Receive Date: 20130616
  Receipt Date: 20130616
  Transmission Date: 20140414
  Serious: No
  Sender: FDA-Public Use
  Company Number: US-US-EMD SERONO, INC.-7079864

PATIENT
  Sex: Female
  Weight: 118 kg

DRUGS (5)
  1. REBIF [Suspect]
     Indication: MULTIPLE SCLEROSIS
     Route: 058
     Dates: start: 20091202
  2. REBIF [Suspect]
     Dates: start: 20110605
  3. CITALOPRAM [Concomitant]
     Indication: DEPRESSION
     Dates: start: 2009
  4. CLARITIN [Concomitant]
     Indication: MULTIPLE ALLERGIES
     Dates: start: 2005
  5. IBUPROFEN [Concomitant]
     Indication: PRODUCT USED FOR UNKNOWN INDICATION
     Dates: end: 20121005

REACTIONS (1)
  - VIIth nerve paralysis [Recovered/Resolved]
